FAERS Safety Report 4728013-0 (Version None)
Quarter: 2005Q3

REPORT INFORMATION
  Report Type: 
  Country: None (occurrence: None)
  Receive Date: 20050725
  Receipt Date: 20050531
  Transmission Date: 20060218
  Serious: No
  Sender: FDA-Public Use
  Company Number: USA050494910

PATIENT
  Age: 7 Year
  Sex: Female
  Weight: 19 kg

DRUGS (3)
  1. STRATTERA [Suspect]
     Indication: ATTENTION DEFICIT/HYPERACTIVITY DISORDER
     Dosage: 25 MG DAY
     Dates: start: 20030601
  2. VITAMINS [Concomitant]
  3. FLAX SEED OIL [Concomitant]

REACTIONS (4)
  - AGGRESSION [None]
  - DISTURBANCE IN ATTENTION [None]
  - GROWTH RETARDATION [None]
  - TACHYCARDIA [None]
